FAERS Safety Report 25617509 (Version 1)
Quarter: 2025Q3

REPORT INFORMATION
  Report Type: Spontaneous
  Country: US (occurrence: US)
  Receive Date: 20250729
  Receipt Date: 20250729
  Transmission Date: 20251020
  Serious: Yes (Death)
  Sender: AMGEN
  Company Number: US-AMGEN-USASP2025145822

PATIENT

DRUGS (3)
  1. PREDNISONE [Suspect]
     Active Substance: PREDNISONE
     Indication: Immunosuppression
     Route: 065
  2. PREDNISONE [Suspect]
     Active Substance: PREDNISONE
     Route: 065
  3. ENTECAVIR [Concomitant]
     Active Substance: ENTECAVIR

REACTIONS (4)
  - Sepsis [Fatal]
  - Thrombosis [Fatal]
  - Hepatitis B DNA increased [Unknown]
  - Hepatic enzyme increased [Unknown]
